FAERS Safety Report 10867834 (Version 2)
Quarter: 2016Q1

REPORT INFORMATION
  Report Type: Report from Study
  Country: CA (occurrence: CA)
  Receive Date: 20150225
  Receipt Date: 20160229
  Transmission Date: 20160525
  Serious: Yes (Other)
  Sender: FDA-Public Use
  Company Number: CA-ABBVIE-15K-028-1349913-00

PATIENT
  Sex: Female

DRUGS (2)
  1. HUMIRA [Suspect]
     Active Substance: ADALIMUMAB
     Route: 058
     Dates: start: 201406, end: 20150210
  2. HUMIRA [Suspect]
     Active Substance: ADALIMUMAB
     Indication: PSORIATIC ARTHROPATHY
     Route: 058
     Dates: start: 20100303, end: 201406

REACTIONS (3)
  - Benign neoplasm [Unknown]
  - Drug effect incomplete [Not Recovered/Not Resolved]
  - Musculoskeletal discomfort [Unknown]
